FAERS Safety Report 7354560-1 (Version None)
Quarter: 2011Q1

REPORT INFORMATION
  Report Type: 
  Country: None (occurrence: None)
  Receive Date: 20110316
  Receipt Date: 20100909
  Transmission Date: 20110831
  Serious: Yes (Other)
  Sender: FDA-Public Use
  Company Number: US-BAYER-201012518NA

PATIENT
  Sex: Female
  Weight: 73.016 kg

DRUGS (3)
  1. YAZ [Suspect]
     Indication: PRODUCT USED FOR UNKNOWN INDICATION
     Dosage: UNK
     Dates: start: 20061206, end: 20070215
  2. NAPROSYN [Concomitant]
     Indication: RHEUMATOID ARTHRITIS
     Dosage: UNK
     Dates: start: 20070101
  3. IMITREX [Concomitant]
     Indication: MIGRAINE

REACTIONS (3)
  - ARTHRALGIA [None]
  - DEEP VEIN THROMBOSIS [None]
  - HYPOAESTHESIA [None]
